FAERS Safety Report 6527101-6 (Version None)
Quarter: 2009Q4

REPORT INFORMATION
  Report Type: 
  Country: None (occurrence: None)
  Receive Date: 20091229
  Receipt Date: 20080225
  Transmission Date: 20100525
  Serious: Yes (Life-Threatening, Hospitalization)
  Sender: FDA-Public Use
  Company Number: 8029437

PATIENT
  Sex: Female
  Weight: 21 kg

DRUGS (7)
  1. KEPPRA [Suspect]
     Indication: AMAUROTIC FAMILIAL IDIOCY
     Dosage: 600 MG BID, VERY LOW DOSE
     Dates: start: 20070101
  2. KEPPRA [Suspect]
     Indication: EPILEPSY
     Dosage: 600 MG BID, VERY LOW DOSE
     Dates: start: 20070101
  3. LAMOTRIGINE [Concomitant]
  4. CLOBAZAM [Concomitant]
  5. DOMPERIDONE [Concomitant]
  6. OMEPRAZOLE [Concomitant]
  7. PIZOTIFEN [Concomitant]

REACTIONS (2)
  - CONVULSION [None]
  - PANCREATITIS [None]
